FAERS Safety Report 19387654 (Version 1)
Quarter: 2021Q2

REPORT INFORMATION
  Report Type: Spontaneous
  Country: US (occurrence: US)
  Receive Date: 20210607
  Receipt Date: 20210607
  Transmission Date: 20210717
  Serious: No
  Sender: FDA-Public Use
  Company Number: US-PERRIGO-21US000069

PATIENT
  Sex: Female

DRUGS (4)
  1. VIVISCAL                           /02137601/ [Concomitant]
     Indication: SUPPLEMENTATION THERAPY
     Dosage: UNKNOWN, UNKNOWN
     Route: 065
     Dates: start: 202011
  2. MINOXIDIL. [Suspect]
     Active Substance: MINOXIDIL
     Indication: ALOPECIA
     Dosage: MORE THAN 1 CAPFUL, QD
     Route: 061
     Dates: start: 20201221, end: 20210103
  3. BIOTIN                             /08249501/ [Concomitant]
     Indication: SUPPLEMENTATION THERAPY
     Dosage: UNKNOWN, UNKNOWN
     Route: 065
     Dates: start: 202011
  4. PROBIOTIC                          /06395501/ [Concomitant]
     Active Substance: BIFIDOBACTERIUM ANIMALIS LACTIS
     Indication: SUPPLEMENTATION THERAPY
     Dosage: UNKNOWN, UNKNOWN
     Route: 065
     Dates: start: 202011

REACTIONS (3)
  - Condition aggravated [Not Recovered/Not Resolved]
  - Incorrect dose administered [Recovered/Resolved]
  - Product administered at inappropriate site [Recovered/Resolved]

NARRATIVE: CASE EVENT DATE: 20201221
